FAERS Safety Report 23781304 (Version 1)
Quarter: 2024Q2

REPORT INFORMATION
  Report Type: Spontaneous
  Country: US (occurrence: US)
  Receive Date: 20240425
  Receipt Date: 20240425
  Transmission Date: 20240716
  Serious: Yes (Other)
  Sender: FDA-Public Use
  Company Number: US-AUROBINDO-AUR-APL-2024-018172

PATIENT
  Age: 80 Year
  Sex: Female

DRUGS (1)
  1. TRANEXAMIC ACID [Suspect]
     Active Substance: TRANEXAMIC ACID
     Indication: Gastrointestinal haemorrhage
     Dosage: UNK
     Route: 065

REACTIONS (1)
  - Acute myocardial infarction [Unknown]
